FAERS Safety Report 14723422 (Version 3)
Quarter: 2021Q1

REPORT INFORMATION
  Report Type: Spontaneous
  Country: GB (occurrence: GB)
  Receive Date: 20180405
  Receipt Date: 20210305
  Transmission Date: 20210419
  Serious: Yes (Death, Life-Threatening, Hospitalization)
  Sender: FDA-Public Use
  Company Number: PHHY2018GB058559

PATIENT
  Age: 81 Year
  Sex: Female
  Weight: 39 kg

DRUGS (7)
  1. TRAMADOL HYDROCHLORIDE. [Suspect]
     Active Substance: TRAMADOL HYDROCHLORIDE
     Indication: PRODUCT USED FOR UNKNOWN INDICATION
     Dosage: 500 MG, QD (OPIATE PUMP SYRINGE)
     Route: 065
     Dates: start: 2009, end: 20120211
  2. LISINOPRIL. [Suspect]
     Active Substance: LISINOPRIL
     Indication: PRODUCT USED FOR UNKNOWN INDICATION
     Dosage: 30 MG
     Route: 048
     Dates: start: 2009, end: 20120211
  3. AMITRIPTYLINE [Suspect]
     Active Substance: AMITRIPTYLINE
     Indication: PRODUCT USED FOR UNKNOWN INDICATION
     Dosage: UNK
     Route: 048
     Dates: start: 2009, end: 20120211
  4. ELECTROLYTES NOS [Suspect]
     Active Substance: ELECTROLYTES NOS
     Indication: PRODUCT USED FOR UNKNOWN INDICATION
     Dosage: UNK
     Route: 042
  5. SIMVASTATIN. [Suspect]
     Active Substance: SIMVASTATIN
     Indication: PRODUCT USED FOR UNKNOWN INDICATION
     Dosage: UNK
     Route: 048
     Dates: start: 2009, end: 20120211
  6. FELODIPINE. [Suspect]
     Active Substance: FELODIPINE
     Indication: PRODUCT USED FOR UNKNOWN INDICATION
     Dosage: 20 MG
     Route: 065
  7. FUROSEMIDE. [Suspect]
     Active Substance: FUROSEMIDE
     Indication: PRODUCT USED FOR UNKNOWN INDICATION
     Dosage: 80 MG
     Route: 048
     Dates: start: 2009, end: 20120211

REACTIONS (13)
  - Dizziness [Fatal]
  - Seizure [Fatal]
  - Oedema peripheral [Fatal]
  - Pain in extremity [Fatal]
  - Chest pain [Fatal]
  - Vomiting [Fatal]
  - Hypocalcaemia [Fatal]
  - Accidental overdose [Fatal]
  - Dyspnoea [Fatal]
  - Pyrexia [Fatal]
  - Anaemia [Fatal]
  - Blood alkaline phosphatase increased [Fatal]
  - Hypercalcaemia [Fatal]

NARRATIVE: CASE EVENT DATE: 2009
